FAERS Safety Report 5974229-5 (Version None)
Quarter: 2008Q4

REPORT INFORMATION
  Report Type: 
  Country: None (occurrence: None)
  Receive Date: 20081201
  Receipt Date: 20081125
  Transmission Date: 20090506
  Serious: Yes (Other)
  Sender: FDA-Public Use
  Company Number: US-PFIZER INC-2008084896

PATIENT
  Age: 78 Year
  Sex: Male
  Weight: 68.5 kg

DRUGS (3)
  1. GLYNASE [Suspect]
  2. DYAZIDE [Suspect]
  3. DIABINESE [Concomitant]

REACTIONS (10)
  - BLOOD GLUCOSE INCREASED [None]
  - CONTUSION [None]
  - DRUG INEFFECTIVE [None]
  - ECCHYMOSIS [None]
  - HYPONATRAEMIA [None]
  - INTENTIONAL DRUG MISUSE [None]
  - LIMB INJURY [None]
  - MICROALBUMINURIA [None]
  - MUSCLE SPASMS [None]
  - PAIN IN EXTREMITY [None]
